FAERS Safety Report 17420718 (Version 1)
Quarter: 2020Q1

REPORT INFORMATION
  Report Type: Spontaneous
  Country: JP (occurrence: JP)
  Receive Date: 20200214
  Receipt Date: 20200214
  Transmission Date: 20200409
  Serious: Yes (Other)
  Sender: FDA-Public Use
  Company Number: NVSC2020JP038220

PATIENT
  Age: 62 Year
  Sex: Female

DRUGS (2)
  1. METHYLPREDNISOLONE. [Suspect]
     Active Substance: METHYLPREDNISOLONE
     Indication: MULTIPLE SCLEROSIS RELAPSE
     Dosage: 1000 MG, QD
     Route: 042
  2. PREDNISOLONE. [Suspect]
     Active Substance: PREDNISOLONE
     Indication: MULTIPLE SCLEROSIS RELAPSE
     Dosage: UNK
     Route: 048

REACTIONS (7)
  - Hyperreflexia [Unknown]
  - Dysarthria [Unknown]
  - Muscular weakness [Unknown]
  - Ataxia [Unknown]
  - Relapsing-remitting multiple sclerosis [Unknown]
  - Sensory disturbance [Unknown]
  - Product use in unapproved indication [Unknown]
